FAERS Safety Report 6556637-7 (Version None)
Quarter: 2010Q1

REPORT INFORMATION
  Report Type: 
  Country: None (occurrence: None)
  Receive Date: 20100125
  Receipt Date: 20100112
  Transmission Date: 20100710
  Serious: Yes (Death)
  Sender: FDA-Public Use
  Company Number: 1000011303

PATIENT
  Age: 64 Year
  Sex: Male

DRUGS (9)
  1. NEBIVOLOL HCL [Suspect]
     Indication: VENTRICULAR TACHYCARDIA
     Dosage: 5 MG (5 MG, 1 IN 1 D), ORAL
     Route: 048
     Dates: start: 20080101, end: 20091103
  2. DIAMOX SRC [Suspect]
     Indication: GLAUCOMA
     Dates: start: 20091020, end: 20091103
  3. COSOPT [Suspect]
     Indication: GLAUCOMA
     Dosage: 2 GTT (2 GTT, 1 IN 1 D), OPHTHALMIC
     Route: 047
     Dates: start: 20091020, end: 20091103
  4. GLUCOPHAGE [Suspect]
     Indication: TYPE 2 DIABETES MELLITUS
     Dosage: 1000 MG 91000 MG, 1 IN 1 D), ORAL
     Route: 048
     Dates: end: 20091103
  5. DIAMICRON [Suspect]
     Indication: TYPE 2 DIABETES MELLITUS
     Dosage: ORAL
     Route: 048
     Dates: end: 20091103
  6. COORENITEC [Suspect]
     Indication: VENTRICULAR ARRHYTHMIA
     Dosage: ORAL
     Route: 048
     Dates: start: 20080101, end: 20091103
  7. BARACLUDE [Suspect]
     Indication: HEPATITIS B
     Dosage: ORAL
     Route: 048
     Dates: start: 20080101, end: 20091103
  8. PREVISCAN [Concomitant]
  9. XALATAN [Concomitant]

REACTIONS (13)
  - ARRHYTHMIA [None]
  - ASCITES [None]
  - CARDIO-RESPIRATORY ARREST [None]
  - ELECTROCARDIOGRAM QT PROLONGED [None]
  - ESCHERICHIA INFECTION [None]
  - HEPATOMEGALY [None]
  - HYPERTONIA [None]
  - HYPOKALAEMIA [None]
  - LACTIC ACIDOSIS [None]
  - METABOLIC ACIDOSIS [None]
  - RENAL FAILURE [None]
  - TONIC CLONIC MOVEMENTS [None]
  - VENTRICULAR TACHYCARDIA [None]
